FAERS Safety Report 6933846-6 (Version None)
Quarter: 2010Q3

REPORT INFORMATION
  Report Type: 
  Country: None (occurrence: None)
  Receive Date: 20100820
  Receipt Date: 20100810
  Transmission Date: 20110219
  Serious: Yes (Hospitalization)
  Sender: FDA-Public Use
  Company Number: JP-ELI_LILLY_AND_COMPANY-JP201008002828

PATIENT
  Age: 69 Year
  Sex: Female
  Weight: 42 kg

DRUGS (13)
  1. PEMETREXED [Suspect]
     Indication: LUNG ADENOCARCINOMA STAGE IV
     Dosage: 500 MG/M2, OTHER
     Route: 042
     Dates: start: 20091223, end: 20100209
  2. CISPLATIN [Concomitant]
     Indication: LUNG ADENOCARCINOMA STAGE IV
     Dosage: 75 MG/M2, OTHER
     Route: 042
     Dates: start: 20091223, end: 20100209
  3. FOLIAMIN [Concomitant]
     Dosage: 0.5 MG, DAILY (1/D)
     Route: 048
     Dates: start: 20091202, end: 20100305
  4. METHYCOBAL [Concomitant]
     Dosage: 1 MG, UNKNOWN
     Route: 030
     Dates: start: 20091202, end: 20100209
  5. KYTRIL [Concomitant]
     Dosage: UNK, UNKNOWN
     Route: 042
     Dates: start: 20091223, end: 20100211
  6. RINDERON [Concomitant]
     Dosage: UNK, UNKNOWN
     Route: 042
     Dates: start: 20091223, end: 20100211
  7. PRIMPERAN TAB [Concomitant]
     Dosage: UNK, UNKNOWN
     Route: 042
     Dates: start: 20091227, end: 20100220
  8. ADONA [Concomitant]
     Dosage: UNK, UNKNOWN
     Route: 067
     Dates: start: 20091222
  9. JUVELA N [Concomitant]
     Dosage: UNK, UNKNOWN
     Route: 048
  10. WARFARIN [Concomitant]
     Indication: ATRIAL FIBRILLATION
     Dosage: UNK, UNKNOWN
     Route: 065
     Dates: start: 20091229
  11. ERYTHROCIN /00020901/ [Concomitant]
     Dosage: UNK, UNKNOWN
     Route: 065
     Dates: start: 20091226
  12. CIBENOL [Concomitant]
     Indication: ATRIAL FIBRILLATION
     Dosage: UNK, UNKNOWN
     Route: 065
     Dates: start: 20091227, end: 20100118
  13. VASOLAN [Concomitant]
     Indication: ATRIAL FIBRILLATION
     Dosage: UNK, UNKNOWN
     Route: 064
     Dates: start: 20091227, end: 20100118

REACTIONS (1)
  - PULMONARY ARTERY THROMBOSIS [None]
